FAERS Safety Report 7821968-7 (Version None)
Quarter: 2011Q4

REPORT INFORMATION
  Report Type: 
  Country: None (occurrence: None)
  Receive Date: 20111018
  Receipt Date: 20110520
  Transmission Date: 20120403
  Serious: No
  Sender: FDA-Public Use
  Company Number: US-ASTRAZENECA-2011SE31386

PATIENT
  Age: 44 Year
  Sex: Female
  Weight: 100.2 kg

DRUGS (12)
  1. VERAPAMIL [Concomitant]
     Indication: BLOOD PRESSURE ABNORMAL
     Dates: start: 19940101, end: 20101224
  2. ENALAPRIL MALEATE [Concomitant]
     Indication: BLOOD PRESSURE ABNORMAL
     Dates: start: 19940101, end: 20101224
  3. STEROID DOSE PACK [Concomitant]
     Indication: COUGH
     Dates: start: 20100101
  4. SYMBICORT [Suspect]
     Indication: ASTHMA
     Dosage: 160/ 4.5 MCG 2 PUFFS BID
     Route: 055
     Dates: start: 20101201, end: 20110201
  5. LISINOPRIL AND HYDROCHLOROTHIAZIDE [Concomitant]
     Indication: BLOOD PRESSURE ABNORMAL
     Dates: start: 20101201
  6. STEAM VAPOR TREATMENTS [Concomitant]
     Indication: ASTHMA
  7. COUGH SYRUP [Concomitant]
     Indication: BRONCHITIS
     Dates: start: 20100101
  8. ALBUTEROL [Concomitant]
     Indication: ASTHMA
     Dates: start: 20101224
  9. HYDROCHLOROTHIAZIDE [Concomitant]
     Indication: BLOOD PRESSURE ABNORMAL
     Dates: start: 19940101, end: 20101224
  10. STEROID DOSE PACK [Concomitant]
     Indication: BRONCHITIS
     Dates: start: 20100101
  11. NIFEDIPINE [Concomitant]
     Indication: BLOOD PRESSURE ABNORMAL
     Dates: start: 20101201
  12. COUGH SYRUP [Concomitant]
     Indication: COUGH
     Dates: start: 20100101

REACTIONS (3)
  - BREATH SOUNDS ABNORMAL [None]
  - COUGH [None]
  - BRONCHITIS [None]
